FAERS Safety Report 4801105-3 (Version None)
Quarter: 2005Q4

REPORT INFORMATION
  Report Type: 
  Country: None (occurrence: None)
  Receive Date: 20051017
  Receipt Date: 20051007
  Transmission Date: 20060501
  Serious: Yes (Hospitalization, Other)
  Sender: FDA-Public Use
  Company Number: US-ABBOTT-05P-163-0313375-00

PATIENT
  Sex: Female
  Weight: 97.156 kg

DRUGS (7)
  1. NORVIR [Suspect]
     Indication: HIV INFECTION
     Route: 048
     Dates: start: 20040831
  2. FLUTICASONE+SALMETEROL [Interacting]
     Indication: CHRONIC OBSTRUCTIVE PULMONARY DISEASE
     Route: 055
     Dates: start: 20030101, end: 20050228
  3. QUETIAPINE FUMARATE [Concomitant]
     Indication: DRUG USE FOR UNKNOWN INDICATION
  4. ZOLPIDEM TATRATE [Concomitant]
     Indication: DRUG USE FOR UNKNOWN INDICATION
  5. ATAZANAVIR [Concomitant]
     Indication: DRUG USE FOR UNKNOWN INDICATION
  6. ALBUTEROL SULFATE HFA [Concomitant]
     Indication: DRUG USE FOR UNKNOWN INDICATION
  7. ALENDRONATE SODIUM [Concomitant]
     Indication: DRUG USE FOR UNKNOWN INDICATION

REACTIONS (7)
  - ADRENAL INSUFFICIENCY [None]
  - CUSHING'S SYNDROME [None]
  - DEPRESSION [None]
  - DRUG INTERACTION [None]
  - ENCEPHALOPATHY [None]
  - PURPURA [None]
  - WEIGHT INCREASED [None]
